FAERS Safety Report 22354632 (Version 1)
Quarter: 2023Q2

REPORT INFORMATION
  Report Type: Spontaneous
  Country: US (occurrence: None)
  Receive Date: 20230522
  Receipt Date: 20230522
  Transmission Date: 20230722
  Serious: Yes (Other)
  Sender: FDA-Public Use
  Company Number: None

PATIENT
  Age: 32 Year
  Sex: Female
  Weight: 63 kg

DRUGS (2)
  1. METHYLPHENIDATE HYDROCHLORIDE [Suspect]
     Active Substance: METHYLPHENIDATE HYDROCHLORIDE
     Indication: Attention deficit hyperactivity disorder
     Dosage: OTHER QUANTITY : 1 TABLET(S);?
     Route: 048
     Dates: start: 20230519
  2. Daily vitamin (rainbow women^s daily multivitamin) [Concomitant]

REACTIONS (7)
  - Product substitution issue [None]
  - Palpitations [None]
  - Dyspnoea [None]
  - Dizziness [None]
  - Aggression [None]
  - Agitation [None]
  - Intentional self-injury [None]

NARRATIVE: CASE EVENT DATE: 20230519
